FAERS Safety Report 9668078 (Version 2)
Quarter: 2013Q4

REPORT INFORMATION
  Report Type: Spontaneous
  Country: US (occurrence: None)
  Receive Date: 20131101
  Receipt Date: 20131122
  Transmission Date: 20140711
  Serious: Yes (Death)
  Sender: FDA-Public Use
  Company Number: ADR-2013-01985

PATIENT
  Age: 17 Year
  Sex: Male

DRUGS (1)
  1. BACLOFEN [Suspect]
     Dosage: 65.08 MCG/DAY
     Route: 037

REACTIONS (2)
  - Death [None]
  - Asphyxia [None]
